FAERS Safety Report 7617183-2 (Version None)
Quarter: 2011Q3

REPORT INFORMATION
  Report Type: 
  Country: None (occurrence: None)
  Receive Date: 20110718
  Receipt Date: 20110614
  Transmission Date: 20111222
  Serious: Yes (Life-Threatening, Hospitalization)
  Sender: FDA-Public Use
  Company Number: DE-B.I. PHARMACEUTICALS,INC./RIDGEFIELD-2011-DE-03564DE

PATIENT
  Sex: Female

DRUGS (3)
  1. MARCUMAR [Suspect]
  2. SPIRIVA [Suspect]
     Indication: DYSPNOEA
     Dosage: 1 PUF
     Route: 055
  3. CORTISON SPRAY [Concomitant]
     Indication: DYSPNOEA

REACTIONS (2)
  - DRUG INTERACTION [None]
  - PROTHROMBIN TIME PROLONGED [None]
